FAERS Safety Report 18052449 (Version 4)
Quarter: 2021Q2

REPORT INFORMATION
  Report Type: Report from Study
  Country: US (occurrence: US)
  Receive Date: 20200722
  Receipt Date: 20210512
  Transmission Date: 20210717
  Serious: Yes (Other)
  Sender: FDA-Public Use
  Company Number: US-BAUSCH-BL-2020-020588

PATIENT
  Age: 70 Year
  Sex: Male
  Weight: 81.27 kg

DRUGS (8)
  1. LACTULOSE. [Suspect]
     Active Substance: LACTULOSE
     Indication: HEPATIC ENCEPHALOPATHY
     Route: 048
     Dates: start: 201901
  2. SPIRONOLACTONE. [Concomitant]
     Active Substance: SPIRONOLACTONE
     Indication: LIVER DISORDER
  3. INSULIN [Concomitant]
     Active Substance: INSULIN NOS
     Indication: DIABETES MELLITUS
  4. XIFAXAN [Suspect]
     Active Substance: RIFAXIMIN
     Indication: HEPATIC ENCEPHALOPATHY
     Dosage: TWO 500 MG PILLS
     Route: 048
     Dates: start: 201901, end: 20210430
  5. LASIX [Concomitant]
     Active Substance: FUROSEMIDE
     Indication: LIVER DISORDER
  6. LACTULOSE. [Suspect]
     Active Substance: LACTULOSE
     Indication: CIRRHOSIS ALCOHOLIC
  7. GLIPIZIDE. [Concomitant]
     Active Substance: GLIPIZIDE
     Indication: DIABETES MELLITUS
  8. XIFAXAN [Suspect]
     Active Substance: RIFAXIMIN
     Indication: CIRRHOSIS ALCOHOLIC

REACTIONS (7)
  - Inability to afford medication [Unknown]
  - Therapy interrupted [Unknown]
  - Condition aggravated [Recovering/Resolving]
  - Hepatic encephalopathy [Recovering/Resolving]
  - Incorrect dose administered [Unknown]
  - Renal failure [Unknown]
  - Insurance issue [Unknown]

NARRATIVE: CASE EVENT DATE: 201901
